FAERS Safety Report 10078431 (Version 2)
Quarter: 2014Q2

REPORT INFORMATION
  Report Type: Spontaneous
  Country: ZA (occurrence: ZA)
  Receive Date: 20140415
  Receipt Date: 20140421
  Transmission Date: 20141212
  Serious: Yes (Death, Hospitalization, Other)
  Sender: FDA-Public Use
  Company Number: ZA-ROCHE-1380999

PATIENT
  Age: 62 Year
  Sex: Female

DRUGS (3)
  1. MABTHERA [Suspect]
     Indication: RHEUMATOID ARTHRITIS
     Route: 065
     Dates: start: 201401
  2. SALAZOPYRIN [Concomitant]
     Route: 065
  3. PREDNISONE [Concomitant]
     Route: 065

REACTIONS (6)
  - Death [Fatal]
  - Knee arthroplasty [Unknown]
  - Escherichia sepsis [Unknown]
  - Hip fracture [Unknown]
  - Pancreatitis necrotising [Unknown]
  - Fall [Unknown]
